FAERS Safety Report 6976667-0 (Version None)
Quarter: 2010Q3

REPORT INFORMATION
  Report Type: 
  Country: None (occurrence: None)
  Receive Date: 20100910
  Receipt Date: 20100830
  Transmission Date: 20110219
  Serious: Yes (Other)
  Sender: FDA-Public Use
  Company Number: JP-PFIZER INC-2010103637

PATIENT
  Age: 74 Year
  Sex: Male

DRUGS (3)
  1. AZULFIDINE [Suspect]
     Indication: RHEUMATOID ARTHRITIS
     Dosage: UNK
     Route: 048
  2. HYPEN [Suspect]
     Dosage: UNK
  3. PREDONINE [Concomitant]
     Indication: RHEUMATOID ARTHRITIS
     Dosage: UNK

REACTIONS (1)
  - RENAL DISORDER [None]
